FAERS Safety Report 9783250 (Version 2)
Quarter: 2013Q4

REPORT INFORMATION
  Report Type: Spontaneous
  Country: IT (occurrence: IT)
  Receive Date: 20131226
  Receipt Date: 20131227
  Transmission Date: 20140711
  Serious: Yes (Hospitalization)
  Sender: FDA-Public Use
  Company Number: IT-PFIZER INC-2013368167

PATIENT
  Age: 14 Year
  Sex: Male
  Weight: 73 kg

DRUGS (2)
  1. XANAX [Suspect]
     Indication: ANXIETY
     Dosage: 0.50 MG, DAILY
     Route: 048
     Dates: start: 20130601, end: 20130601
  2. SERENASE [Suspect]
     Indication: ANXIETY
     Dosage: 10 GTT, DAILY
     Route: 048
     Dates: start: 20130531, end: 20130531

REACTIONS (7)
  - Dysphagia [Recovered/Resolved]
  - Gait disturbance [Recovered/Resolved]
  - Tremor [Recovered/Resolved]
  - Oromandibular dystonia [Recovered/Resolved]
  - Tongue paralysis [Recovered/Resolved]
  - Extrapyramidal disorder [Recovered/Resolved]
  - Muscle rigidity [Recovered/Resolved]
